FAERS Safety Report 21665912 (Version 1)
Quarter: 2022Q4

REPORT INFORMATION
  Report Type: Report from Study
  Country: CA (occurrence: CA)
  Receive Date: 20221201
  Receipt Date: 20221201
  Transmission Date: 20230112
  Serious: Yes (Death)
  Sender: FDA-Public Use
  Company Number: CA-ABBVIE-4219338

PATIENT
  Age: 87 Year
  Sex: Male

DRUGS (1)
  1. LUPRON [Suspect]
     Active Substance: LEUPROLIDE ACETATE
     Indication: Prostate cancer
     Dosage: STRENGTH: 30 MILLIGRAM
     Route: 030
     Dates: start: 20220802

REACTIONS (1)
  - Death [Fatal]

NARRATIVE: CASE EVENT DATE: 20221024
